FAERS Safety Report 4960392-1 (Version None)
Quarter: 2006Q2

REPORT INFORMATION
  Report Type: 
  Country: None (occurrence: None)
  Receive Date: 20060403
  Receipt Date: 20060320
  Transmission Date: 20061013
  Serious: Yes (Other)
  Sender: FDA-Public Use
  Company Number: PHFR2006GB01212

PATIENT
  Age: 5 Year
  Sex: Male

DRUGS (3)
  1. TEGRETOL [Suspect]
     Dosage: 50 MG, QD
     Route: 048
  2. PHENYTOIN SODIUM CAP [Suspect]
     Dosage: 125 MG, BID
     Route: 048
  3. FRESUBIN [Suspect]
     Route: 065

REACTIONS (1)
  - CONVULSION [None]
